FAERS Safety Report 12349508 (Version 1)
Quarter: 2016Q2

REPORT INFORMATION
  Report Type: Spontaneous
  Country: US (occurrence: US)
  Receive Date: 20160510
  Receipt Date: 20160510
  Transmission Date: 20160815
  Serious: Yes (Other)
  Sender: FDA-Public Use
  Company Number: PHHY2016US062736

PATIENT
  Age: 64 Year
  Sex: Male

DRUGS (1)
  1. MEFLOQUINE [Suspect]
     Active Substance: MEFLOQUINE
     Indication: PRODUCT USED FOR UNKNOWN INDICATION
     Dosage: 1250 MG,
     Route: 065

REACTIONS (5)
  - Intentional product misuse [Unknown]
  - Pyrexia [Unknown]
  - Tachycardia [Unknown]
  - Diarrhoea [Unknown]
  - Hyperhidrosis [Unknown]
